FAERS Safety Report 5403266-4 (Version None)
Quarter: 2007Q3

REPORT INFORMATION
  Report Type: 
  Country: None (occurrence: None)
  Receive Date: 20070801
  Receipt Date: 20070720
  Transmission Date: 20080115
  Serious: Yes (Death)
  Sender: FDA-Public Use
  Company Number: FR-PFIZER INC-2007062421

PATIENT
  Sex: Male

DRUGS (1)
  1. VIRACEPT [Suspect]
     Indication: HIV INFECTION
     Dosage: TEXT:10 TABLETS DAILY
     Route: 048

REACTIONS (3)
  - DRUG EXPOSURE DURING PREGNANCY [None]
  - LUNG INFECTION [None]
  - PREMATURE BABY [None]
